FAERS Safety Report 22596682 (Version 1)
Quarter: 2023Q2

REPORT INFORMATION
  Report Type: Spontaneous
  Country: CA (occurrence: CA)
  Receive Date: 20230613
  Receipt Date: 20230613
  Transmission Date: 20230721
  Serious: Yes (Other)
  Sender: FDA-Public Use
  Company Number: CA-FreseniusKabi-FK202308241

PATIENT
  Age: 70 Year
  Sex: Female

DRUGS (6)
  1. HEPARIN [Suspect]
     Active Substance: HEPARIN SODIUM
     Indication: Product used for unknown indication
     Route: 065
  2. PEMBROLIZUMAB [Suspect]
     Active Substance: PEMBROLIZUMAB
     Indication: Product used for unknown indication
     Dosage: 200 MG
     Route: 042
  3. PEMBROLIZUMAB [Suspect]
     Active Substance: PEMBROLIZUMAB
     Indication: Breast cancer
     Route: 042
  4. PEMBROLIZUMAB [Suspect]
     Active Substance: PEMBROLIZUMAB
     Dosage: 200 MG
     Route: 042
  5. PEMBROLIZUMAB [Suspect]
     Active Substance: PEMBROLIZUMAB
     Route: 042
  6. PEMBROLIZUMAB [Suspect]
     Active Substance: PEMBROLIZUMAB
     Route: 042

REACTIONS (33)
  - Anxiety [Unknown]
  - Appetite disorder [Unknown]
  - Blood pressure increased [Unknown]
  - Brain fog [Unknown]
  - Chemotherapy [Unknown]
  - Constipation [Unknown]
  - Depressed mood [Unknown]
  - Dry mouth [Unknown]
  - Dyspepsia [Unknown]
  - Dyspnoea [Unknown]
  - Eating disorder [Unknown]
  - Emotional disorder [Unknown]
  - Energy increased [Unknown]
  - Fatigue [Unknown]
  - Feeling abnormal [Unknown]
  - Gastrooesophageal reflux disease [Unknown]
  - General physical condition abnormal [Unknown]
  - Haemoglobin decreased [Unknown]
  - Hypoaesthesia [Unknown]
  - Hypotension [Unknown]
  - Infusion site erythema [Unknown]
  - Infusion site pain [Unknown]
  - Malaise [Unknown]
  - Product use issue [Unknown]
  - Sleep disorder [Unknown]
  - Somnolence [Unknown]
  - Tearfulness [Unknown]
  - Vascular access complication [Unknown]
  - Weight abnormal [Unknown]
  - White blood cell count decreased [Unknown]
  - Drug hypersensitivity [Unknown]
  - Therapeutic response unexpected [Unknown]
  - Nausea [Unknown]
